FAERS Safety Report 26132709 (Version 1)
Quarter: 2025Q4

REPORT INFORMATION
  Report Type: Spontaneous
  Country: EU (occurrence: EU)
  Receive Date: 20251208
  Receipt Date: 20251208
  Transmission Date: 20260117
  Serious: Yes (Hospitalization)
  Sender: AZURITY PHARMACEUTICALS
  Company Number: EU-AZURITY PHARMACEUTICALS, INC.-AZR202511-003681

PATIENT
  Age: 68 Year
  Sex: Male

DRUGS (3)
  1. TRIPTORELIN [Suspect]
     Active Substance: TRIPTORELIN
     Indication: Prostate cancer stage IV
     Dosage: 22.5 MILLIGRAM IN 6 MONTH (1 INYECCI?N SEMESTRAL)
     Route: 030
     Dates: start: 20200228
  2. COBICISTAT\DARUNAVIR ETHANOLATE [Suspect]
     Active Substance: COBICISTAT\DARUNAVIR ETHANOLATE
     Indication: HIV infection
     Dosage: 1 DOSAGE FORM, IN 24 HOUR (1 TABLET DAILY)
     Route: 065
     Dates: start: 20151214
  3. TIVICAY [Suspect]
     Active Substance: DOLUTEGRAVIR SODIUM
     Indication: HIV infection
     Dosage: 50 MILLIGRAMS, IN 24 HOUR (1 TABLET DAILY)
     Route: 065
     Dates: start: 20170627

REACTIONS (2)
  - Herpes simplex [Recovering/Resolving]
  - Rash vesicular [Recovering/Resolving]

NARRATIVE: CASE EVENT DATE: 20250119
